FAERS Safety Report 11768026 (Version 1)
Quarter: 2015Q4

REPORT INFORMATION
  Report Type: Spontaneous
  Country: US (occurrence: US)
  Receive Date: 20151123
  Receipt Date: 20151123
  Transmission Date: 20160304
  Serious: No
  Sender: FDA-Public Use
  Company Number: US-JNJFOC-20151003446

PATIENT
  Sex: Female
  Weight: 65.77 kg

DRUGS (3)
  1. ZYRTEC [Suspect]
     Active Substance: CETIRIZINE HYDROCHLORIDE
     Indication: UPPER-AIRWAY COUGH SYNDROME
     Dosage: 1 TABLET AT ONCE
     Route: 048
     Dates: start: 20151005
  2. ZYRTEC [Suspect]
     Active Substance: CETIRIZINE HYDROCHLORIDE
     Indication: HYPERSENSITIVITY
     Dosage: 1 TABLET AT ONCE
     Route: 048
     Dates: start: 20151005
  3. ZYRTEC [Suspect]
     Active Substance: CETIRIZINE HYDROCHLORIDE
     Indication: SENSATION OF FOREIGN BODY
     Dosage: 1 TABLET AT ONCE
     Route: 048
     Dates: start: 20151005

REACTIONS (3)
  - Product use issue [Unknown]
  - Product physical issue [Unknown]
  - Product tampering [Unknown]
